FAERS Safety Report 7765334-1 (Version None)
Quarter: 2011Q3

REPORT INFORMATION
  Report Type: 
  Country: None (occurrence: None)
  Receive Date: 20110921
  Receipt Date: 20110310
  Transmission Date: 20111222
  Serious: No
  Sender: FDA-Public Use
  Company Number: US-BAYER-2011-022551

PATIENT
  Age: 31 Year
  Sex: Male

DRUGS (1)
  1. ULTRAVIST 150 [Suspect]
     Indication: COMPUTERISED TOMOGRAM
     Dosage: 100 ML, UNK
     Route: 042
     Dates: start: 20110316, end: 20110316

REACTIONS (2)
  - URTICARIA [None]
  - PRURITUS [None]
